FAERS Safety Report 16246892 (Version 2)
Quarter: 2019Q2

REPORT INFORMATION
  Report Type: Spontaneous
  Country: DE (occurrence: DE)
  Receive Date: 20190427
  Receipt Date: 20190621
  Transmission Date: 20190711
  Serious: Yes (Congenital Anomaly)
  Sender: FDA-Public Use
  Company Number: DE-ACCORD-124323

PATIENT
  Age: 1 Day
  Sex: Female
  Weight: 3.41 kg

DRUGS (6)
  1. LEPONEX [Suspect]
     Active Substance: CLOZAPINE
     Indication: SCHIZOAFFECTIVE DISORDER
     Dosage: 350 MG/D / INITIAL 225 MG/D, INCREASING DOSAGE TO 350 MG/D
     Route: 064
     Dates: start: 20171105, end: 20180724
  2. ARIPIPRAZOLE. [Concomitant]
     Active Substance: ARIPIPRAZOLE
     Indication: SCHIZOAFFECTIVE DISORDER
     Route: 064
     Dates: start: 20171109, end: 20171109
  3. FOLIC ACID ABZ [Concomitant]
     Active Substance: FOLIC ACID
     Indication: VITAMIN SUPPLEMENTATION
     Dosage: MATERNAL DOSE 5 MG/D
     Route: 064
     Dates: start: 20180518, end: 20180518
  4. HALOPERIDOL. [Concomitant]
     Active Substance: HALOPERIDOL
     Indication: SCHIZOAFFECTIVE DISORDER
     Dosage: 6 MG/D
     Route: 064
     Dates: start: 20180514, end: 20180724
  5. SERTRALINE [Suspect]
     Active Substance: SERTRALINE HYDROCHLORIDE
     Indication: SCHIZOAFFECTIVE DISORDER
     Dosage: 0. - 12.4. GESTATIONAL WEEK
     Route: 064
     Dates: start: 20171105, end: 20180201
  6. RISPERDAL [Suspect]
     Active Substance: RISPERIDONE
     Indication: SCHIZOAFFECTIVE DISORDER
     Dosage: 2 MG/D, MATERNAL DOSE 2 MG, QD
     Route: 064

REACTIONS (3)
  - Foetal exposure during pregnancy [Unknown]
  - Exomphalos [Recovered/Resolved with Sequelae]
  - Ventricular septal defect [Not Recovered/Not Resolved]

NARRATIVE: CASE EVENT DATE: 20180724
